FAERS Safety Report 11929663 (Version 1)
Quarter: 2016Q1

REPORT INFORMATION
  Report Type: Spontaneous
  Country: US (occurrence: None)
  Receive Date: 20160119
  Receipt Date: 20160119
  Transmission Date: 20160526
  Serious: Yes (Other)
  Sender: FDA-Public Use
  Company Number: None

PATIENT
  Age: 28 Year
  Sex: Female
  Weight: 49.9 kg

DRUGS (1)
  1. AMITRIPTYLINE ANTIDEPRESSANT [Suspect]
     Active Substance: AMITRIPTYLINE
     Indication: ANTIDEPRESSANT THERAPY
     Route: 048

REACTIONS (10)
  - Abnormal behaviour [None]
  - Aggression [None]
  - Refusal of treatment by patient [None]
  - Hallucination [None]
  - Fractured coccyx [None]
  - Disorganised speech [None]
  - Dysarthria [None]
  - Heart rate increased [None]
  - Amnesia [None]
  - Fall [None]

NARRATIVE: CASE EVENT DATE: 20160114
